FAERS Safety Report 5702619-4 (Version None)
Quarter: 2008Q2

REPORT INFORMATION
  Report Type: 
  Country: None (occurrence: None)
  Receive Date: 20080411
  Receipt Date: 20080402
  Transmission Date: 20081010
  Serious: Yes (Death)
  Sender: FDA-Public Use
  Company Number: CA-ELI_LILLY_AND_COMPANY-CA200804000874

PATIENT
  Sex: Male

DRUGS (4)
  1. HUMULIN N [Suspect]
     Indication: DIABETES MELLITUS
     Dosage: 35 U, 2/D
  2. HUMULIN N [Suspect]
     Dosage: 60 U, DAILY (1/D)
  3. HUMALOG [Suspect]
     Indication: DIABETES MELLITUS
     Dosage: 40 U, EACH MORNING
  4. HUMALOG [Suspect]
     Dosage: 60 U, EACH EVENING

REACTIONS (1)
  - CARDIAC DISORDER [None]
